FAERS Safety Report 11220835 (Version 2)
Quarter: 2015Q3

REPORT INFORMATION
  Report Type: Spontaneous
  Country: US (occurrence: US)
  Receive Date: 20150626
  Receipt Date: 20150710
  Transmission Date: 20151125
  Serious: No
  Sender: FDA-Public Use
  Company Number: US-009507513-1506USA009039

PATIENT
  Sex: Female
  Weight: 76.19 kg

DRUGS (1)
  1. NEXPLANON [Suspect]
     Active Substance: ETONOGESTREL
     Indication: CONTRACEPTION
     Dosage: 68 MG, ONE ROD
     Route: 059
     Dates: start: 20150223, end: 20150511

REACTIONS (4)
  - Staphylococcal infection [Recovering/Resolving]
  - Localised infection [Unknown]
  - Contusion [Unknown]
  - Implant site infection [Recovering/Resolving]

NARRATIVE: CASE EVENT DATE: 2015
